FAERS Safety Report 9414239 (Version 1)
Quarter: 2013Q3

REPORT INFORMATION
  Report Type: Spontaneous
  Country: IT (occurrence: None)
  Receive Date: 20130718
  Receipt Date: 20130718
  Transmission Date: 20140515
  Serious: Yes (Hospitalization)
  Sender: FDA-Public Use
  Company Number: AUR-APL-2013-05849

PATIENT
  Age: 80 Year
  Sex: Male

DRUGS (2)
  1. RAMIPRIL (RAMIPRIL) [Suspect]
     Indication: HYPERTENSION
     Dosage: 5 MG TOTAL, ORAL
     Route: 048
     Dates: start: 20130624, end: 20130624
  2. BRUFEN (IBUPROFEN) [Concomitant]
     Indication: HYPERTENSION
     Route: 048
     Dates: start: 20130624, end: 20130624

REACTIONS (2)
  - Angioedema [None]
  - Blood pressure increased [None]
